FAERS Safety Report 9382190 (Version 1)
Quarter: 2013Q3

REPORT INFORMATION
  Report Type: Spontaneous
  Country: US (occurrence: None)
  Receive Date: 20130702
  Receipt Date: 20130702
  Transmission Date: 20140515
  Serious: No
  Sender: FDA-Public Use
  Company Number: None

PATIENT
  Sex: Female

DRUGS (2)
  1. FORTEO [Suspect]
     Indication: BONE DISORDER
     Dosage: 20 MCG DAILY SQ
     Route: 058
     Dates: start: 20130411, end: 201305
  2. FORTEO [Suspect]
     Indication: CHONDROPATHY
     Dosage: 20 MCG DAILY SQ
     Route: 058
     Dates: start: 20130411, end: 201305

REACTIONS (2)
  - Cardiac fibrillation [None]
  - Cardiac arrest [None]
